FAERS Safety Report 19625687 (Version 1)
Quarter: 2021Q3

REPORT INFORMATION
  Report Type: Report from Study
  Country: US (occurrence: US)
  Receive Date: 20210729
  Receipt Date: 20210729
  Transmission Date: 20211014
  Serious: Yes (Other)
  Sender: FDA-Public Use
  Company Number: US-EMD SERONO-9254114

PATIENT
  Age: 43 Year
  Sex: Female

DRUGS (1)
  1. REBIF [Suspect]
     Active Substance: INTERFERON BETA-1A
     Indication: MULTIPLE SCLEROSIS
     Dosage: REBIJECT II/MANUAL
     Route: 058
     Dates: start: 20200419

REACTIONS (1)
  - Pituitary tumour [Unknown]

NARRATIVE: CASE EVENT DATE: 2021
